FAERS Safety Report 15856863 (Version 1)
Quarter: 2019Q1

REPORT INFORMATION
  Report Type: Spontaneous
  Country: US (occurrence: US)
  Receive Date: 20190122
  Receipt Date: 20190122
  Transmission Date: 20190417
  Serious: No
  Sender: FDA-Public Use
  Company Number: None

PATIENT
  Age: 76 Year
  Sex: Female
  Weight: 116.55 kg

DRUGS (7)
  1. TYLENOL [Concomitant]
     Active Substance: ACETAMINOPHEN
  2. CARVEDILOL. [Concomitant]
     Active Substance: CARVEDILOL
  3. FASLODEX [Concomitant]
     Active Substance: FULVESTRANT
  4. ASPIRIN 81MG [Concomitant]
     Active Substance: ASPIRIN
  5. KISQALI [Suspect]
     Active Substance: RIBOCICLIB
     Indication: BREAST CANCER
     Route: 048
     Dates: start: 20181213, end: 20190122
  6. OXYCODONE [Concomitant]
     Active Substance: OXYCODONE
  7. LOSARTAN. [Concomitant]
     Active Substance: LOSARTAN

REACTIONS (2)
  - Malaise [None]
  - Drug intolerance [None]
